FAERS Safety Report 7766979-5 (Version None)
Quarter: 2011Q3

REPORT INFORMATION
  Report Type: 
  Country: None (occurrence: None)
  Receive Date: 20110922
  Receipt Date: 20110916
  Transmission Date: 20111222
  Serious: Yes (Other)
  Sender: FDA-Public Use
  Company Number: PHHY2011US83195

PATIENT
  Age: 62 Year
  Sex: Male

DRUGS (1)
  1. ZOMETA [Suspect]
     Indication: METASTASES TO SPINE

REACTIONS (6)
  - FEMUR FRACTURE [None]
  - BONE MARROW OEDEMA [None]
  - SOFT TISSUE HAEMORRHAGE [None]
  - BONE CALLUS EXCESSIVE [None]
  - FALL [None]
  - BONE DISORDER [None]
